FAERS Safety Report 8131689-1 (Version None)
Quarter: 2012Q1

REPORT INFORMATION
  Report Type: 
  Country: None (occurrence: None)
  Receive Date: 20120207
  Receipt Date: 20120127
  Transmission Date: 20120608
  Serious: Yes (Death)
  Sender: FDA-Public Use
  Company Number: 1177535

PATIENT
  Age: 84 Year
  Sex: Female

DRUGS (5)
  1. CYCLOPHOSPHAMIDE [Suspect]
     Indication: CHEMOTHERAPY
  2. RITUXAN [Suspect]
     Indication: CHEMOTHERAPY
  3. DOXORUBICIN HCL [Suspect]
     Indication: CHEMOTHERAPY
  4. PREDNISONE [Suspect]
     Indication: CHEMOTHERAPY
  5. VINCRISTINE SULFATE [Suspect]
     Indication: CHEMOTHERAPY
     Dosage: 2 MG
     Dates: start: 20120113

REACTIONS (2)
  - NEOPLASM PROGRESSION [None]
  - DIFFUSE LARGE B-CELL LYMPHOMA STAGE II [None]
